FAERS Safety Report 10155780 (Version 2)
Quarter: 2014Q2

REPORT INFORMATION
  Report Type: Spontaneous
  Country: GB (occurrence: GB)
  Receive Date: 20140506
  Receipt Date: 20140506
  Transmission Date: 20141212
  Serious: Yes (Other)
  Sender: FDA-Public Use
  Company Number: GB-BAYER-2014-043116

PATIENT
  Age: 46 Year
  Sex: Male

DRUGS (9)
  1. HELIXATE NEXGEN [Suspect]
     Indication: FACTOR VIII DEFICIENCY
     Dosage: UNK
     Route: 042
     Dates: start: 20140102, end: 20140110
  2. HELIXATE NEXGEN [Suspect]
     Indication: COMPARTMENT SYNDROME
     Dosage: UNK
     Route: 042
     Dates: start: 20140102, end: 20140110
  3. HELIXATE NEXGEN [Suspect]
     Indication: INJURY
     Dosage: UNK
     Route: 042
     Dates: start: 20140102, end: 20140110
  4. HELIXATE NEXGEN [Suspect]
     Indication: FACTOR VIII DEFICIENCY
     Dosage: UNK
     Route: 042
     Dates: start: 20140102, end: 20140110
  5. HELIXATE NEXGEN [Suspect]
     Indication: FACTOR VIII DEFICIENCY
     Dosage: UNK
  6. HELIXATE NEXGEN [Suspect]
     Indication: FACTOR VIII DEFICIENCY
     Dosage: UNK UNK, BID
  7. HELIXATE NEXGEN [Suspect]
     Indication: FACTOR VIII DEFICIENCY
     Dosage: UNK
  8. HELIXATE NEXGEN [Suspect]
     Indication: FACTOR VIII DEFICIENCY
     Dosage: UNK
  9. ADVATE [FACTOR VIII (ANTIHAEMOPHILIC FACTOR)] [Concomitant]
     Indication: FACTOR VIII DEFICIENCY

REACTIONS (3)
  - Anti factor VIII antibody positive [None]
  - Drug ineffective [Recovered/Resolved]
  - Compartment syndrome [None]
